FAERS Safety Report 22136677 (Version 1)
Quarter: 2023Q1

REPORT INFORMATION
  Report Type: Spontaneous
  Country: TW (occurrence: TW)
  Receive Date: 20230324
  Receipt Date: 20230324
  Transmission Date: 20230417
  Serious: Yes (Other)
  Sender: FDA-Public Use
  Company Number: TW-BAXTER-2023BAX016288

PATIENT
  Age: 54 Year
  Sex: Female

DRUGS (8)
  1. CYCLOPHOSPHAMIDE [Suspect]
     Active Substance: CYCLOPHOSPHAMIDE
     Indication: Acute lymphocytic leukaemia
     Dosage: HYPERCVAD INDUCTION, FOR 2 MONTHS
     Route: 065
     Dates: start: 201611, end: 201701
  2. CYCLOPHOSPHAMIDE [Suspect]
     Active Substance: CYCLOPHOSPHAMIDE
     Indication: Chronic myeloid leukaemia
  3. DEXAMETHASONE [Suspect]
     Active Substance: DEXAMETHASONE
     Indication: Acute lymphocytic leukaemia
     Dosage: HYPERCVAD INDUCTION, FOR 2 MONTHS
     Route: 065
     Dates: start: 201611, end: 201701
  4. DEXAMETHASONE [Suspect]
     Active Substance: DEXAMETHASONE
     Indication: Chronic myeloid leukaemia
  5. VINCRISTINE [Suspect]
     Active Substance: VINCRISTINE
     Indication: Chronic myeloid leukaemia
     Dosage: HYPERCVAD INDUCTION, FOR 2 MONTHS
     Route: 065
     Dates: start: 201611, end: 201701
  6. VINCRISTINE [Suspect]
     Active Substance: VINCRISTINE
     Indication: Acute lymphocytic leukaemia
  7. ADRIAMYCIN [Suspect]
     Active Substance: DOXORUBICIN HYDROCHLORIDE
     Indication: Chronic myeloid leukaemia
     Dosage: HYPERCVAD INDUCTION, FOR 2 MONTHS
     Route: 065
     Dates: start: 201611, end: 201701
  8. ADRIAMYCIN [Suspect]
     Active Substance: DOXORUBICIN HYDROCHLORIDE
     Indication: Acute lymphocytic leukaemia

REACTIONS (1)
  - Toxicity to various agents [Unknown]
